FAERS Safety Report 8772779 (Version 2)
Quarter: 2013Q4

REPORT INFORMATION
  Report Type: Spontaneous
  Country: US (occurrence: US)
  Receive Date: 20120907
  Receipt Date: 20131101
  Transmission Date: 20140711
  Serious: No
  Sender: FDA-Public Use
  Company Number: US-009507513-1209USA000981

PATIENT
  Sex: Female

DRUGS (1)
  1. MIRALAX [Suspect]
     Indication: CONSTIPATION
     Dosage: 17 G, BID
     Route: 048
     Dates: start: 20120819, end: 20120821

REACTIONS (3)
  - Swollen tongue [Not Recovered/Not Resolved]
  - Glossitis [Not Recovered/Not Resolved]
  - Overdose [Not Recovered/Not Resolved]
